FAERS Safety Report 4989552-0 (Version None)
Quarter: 2006Q2

REPORT INFORMATION
  Report Type: 
  Country: None (occurrence: None)
  Receive Date: 20060502
  Receipt Date: 20060419
  Transmission Date: 20061013
  Serious: Yes (Hospitalization)
  Sender: FDA-Public Use
  Company Number: JP-MERCK-0604USA03283

PATIENT
  Age: 61 Year
  Sex: Female

DRUGS (4)
  1. SINGULAIR [Suspect]
     Indication: ASTHMA
     Route: 048
     Dates: start: 20040401, end: 20050401
  2. SINGULAIR [Suspect]
     Route: 048
     Dates: start: 20050401, end: 20060101
  3. SINGULAIR [Suspect]
     Indication: BRONCHITIS
     Route: 048
     Dates: start: 20040401, end: 20050401
  4. SINGULAIR [Suspect]
     Route: 048
     Dates: start: 20050401, end: 20060101

REACTIONS (1)
  - ALLERGIC GRANULOMATOUS ANGIITIS [None]
